FAERS Safety Report 10988214 (Version 2)
Quarter: 2015Q2

REPORT INFORMATION
  Report Type: Spontaneous
  Country: US (occurrence: US)
  Receive Date: 20150404
  Receipt Date: 20150525
  Transmission Date: 20150821
  Serious: No
  Sender: FDA-Public Use
  Company Number: US-JNJFOC-20141008279

PATIENT
  Sex: Female
  Weight: 48.54 kg

DRUGS (2)
  1. REMICADE [Suspect]
     Active Substance: INFLIXIMAB
     Indication: RHEUMATOID ARTHRITIS
     Dosage: LOADING DOSE AT 0,2 AND 4 WEEKS FOLLOWED BY 4 WEEKLY MAINENANCE DOSE.
     Route: 042
     Dates: start: 20140917
  2. REMICADE [Suspect]
     Active Substance: INFLIXIMAB
     Indication: RHEUMATOID ARTHRITIS
     Dosage: LOADING DOSE AT 0,2 AND 4 WEEKS FOLLOWED BY 4 WEEKLY MAINENANCE DOSE.
     Route: 042
     Dates: start: 20140513

REACTIONS (4)
  - Drug ineffective [Not Recovered/Not Resolved]
  - Red blood cell sedimentation rate increased [Not Recovered/Not Resolved]
  - Fatigue [Not Recovered/Not Resolved]
  - Rheumatoid arthritis [Not Recovered/Not Resolved]

NARRATIVE: CASE EVENT DATE: 2014
